FAERS Safety Report 8622561-9 (Version None)
Quarter: 2012Q3

REPORT INFORMATION
  Report Type: 
  Country: None (occurrence: None)
  Receive Date: 20120827
  Receipt Date: 20120815
  Transmission Date: 20120928
  Serious: Yes (Other)
  Sender: FDA-Public Use
  Company Number: AR-AMGEN-ARGSP2012050830

PATIENT
  Age: 50 Year
  Sex: Female

DRUGS (3)
  1. CILOSTAZOL [Concomitant]
     Dosage: UNK
  2. SINTROM [Concomitant]
     Dosage: UNK
  3. ENBREL [Suspect]
     Indication: RHEUMATOID ARTHRITIS
     Dosage: 50 MG, WEEKLY
     Route: 058
     Dates: start: 20111015

REACTIONS (1)
  - NO ADVERSE EVENT [None]
